FAERS Safety Report 8806423 (Version 1)
Quarter: 2012Q4

REPORT INFORMATION
  Report Type: 
  Country: BE (occurrence: BE)
  Receive Date: 20120925
  Receipt Date: 20120925
  Transmission Date: 20130627
  Serious: Yes (Other)
  Sender: FDA-Public Use
  Company Number: BE-BAYER-2012-098815

PATIENT
  Age: 57 Year
  Sex: Male

DRUGS (2)
  1. PROFLOX [Suspect]
     Indication: SINUSITIS
     Dosage: 400 mg, QD
     Route: 048
     Dates: start: 20111205, end: 20111214
  2. CRESTOR [Concomitant]
     Dosage: 10mg every 2 days
     Dates: start: 2008

REACTIONS (7)
  - Blood creatine phosphokinase increased [None]
  - Myoglobin blood increased [None]
  - Hypogeusia [None]
  - Malaise [None]
  - Weight decreased [None]
  - Hyperhidrosis [None]
  - Fatigue [None]
